FAERS Safety Report 5063153-0 (Version None)
Quarter: 2006Q3

REPORT INFORMATION
  Report Type: 
  Country: None (occurrence: None)
  Receive Date: 20060724
  Receipt Date: 20060705
  Transmission Date: 20061208
  Serious: Yes (Other)
  Sender: FDA-Public Use
  Company Number: US200607000520

PATIENT
  Age: 94 Year
  Sex: Female

DRUGS (1)
  1. EVISTA [Suspect]
     Indication: OSTEOPOROSIS
     Dosage: ORAL
     Route: 048
     Dates: start: 20030101

REACTIONS (4)
  - ABASIA [None]
  - DECREASED ACTIVITY [None]
  - SPINAL COMPRESSION FRACTURE [None]
  - SPINAL DISORDER [None]
